FAERS Safety Report 13312503 (Version 3)
Quarter: 2018Q2

REPORT INFORMATION
  Report Type: Spontaneous
  Country: FR (occurrence: FR)
  Receive Date: 20170309
  Receipt Date: 20180626
  Transmission Date: 20180711
  Serious: Yes (Death, Hospitalization, Other)
  Sender: FDA-Public Use
  Company Number: FR-TEVA-747393ROM

PATIENT
  Age: 71 Year
  Sex: Male
  Weight: 113.4 kg

DRUGS (23)
  1. KARDEGIC [Concomitant]
     Active Substance: ASPIRIN DL-LYSINE
     Indication: PRODUCT USED FOR UNKNOWN INDICATION
     Route: 065
  2. SYMBICORT [Suspect]
     Active Substance: BUDESONIDE\FORMOTEROL FUMARATE DIHYDRATE
     Indication: PRODUCT USED FOR UNKNOWN INDICATION
     Dosage: 1 DOSAGE FORMS DAILY;
     Route: 055
     Dates: start: 20161220, end: 20170119
  3. RACECADOTRIL [Suspect]
     Active Substance: RACECADOTRIL
     Indication: PRODUCT USED FOR UNKNOWN INDICATION
     Dosage: 3 DOSAGE FORMS DAILY; 100 MG, (1 DF)
     Route: 048
     Dates: start: 20161209, end: 20170119
  4. VANCOMYCIN HYDROCHLORIDE. [Suspect]
     Active Substance: VANCOMYCIN HYDROCHLORIDE
     Indication: PRODUCT USED FOR UNKNOWN INDICATION
     Route: 065
  5. LINEZOLIDE [Suspect]
     Active Substance: LINEZOLID
     Indication: SKIN INFECTION
     Dosage: 2 DOSAGE FORMS DAILY;
     Route: 048
     Dates: start: 20160222, end: 20170110
  6. QUESTRAN [Suspect]
     Active Substance: CHOLESTYRAMINE
     Indication: PRODUCT USED FOR UNKNOWN INDICATION
     Route: 048
     Dates: start: 20161216, end: 20170119
  7. FUROSEMIDE ARROW [Concomitant]
     Active Substance: FUROSEMIDE
  8. UMULINE [Concomitant]
     Active Substance: INSULIN HUMAN
     Indication: PRODUCT USED FOR UNKNOWN INDICATION
  9. RIFADIN [Suspect]
     Active Substance: RIFAMPIN
     Indication: PRODUCT USED FOR UNKNOWN INDICATION
     Route: 065
  10. DUPHALAC [Concomitant]
     Active Substance: LACTULOSE
     Indication: PRODUCT USED FOR UNKNOWN INDICATION
  11. LOPERAMIDE ARROW [Concomitant]
     Active Substance: LOPERAMIDE
     Route: 065
  12. CUBICIN [Suspect]
     Active Substance: DAPTOMYCIN
     Indication: PRODUCT USED FOR UNKNOWN INDICATION
     Dates: start: 20170110, end: 20170201
  13. LANTUS [Concomitant]
     Active Substance: INSULIN GLARGINE
     Indication: PRODUCT USED FOR UNKNOWN INDICATION
     Route: 065
  14. TRAMADOL/PARACETAMOL MYLAN 37.5 MG/325 MG [Suspect]
     Active Substance: ACETAMINOPHEN\TRAMADOL
     Indication: PRODUCT USED FOR UNKNOWN INDICATION
     Dosage: 8 DOSAGE FORMS DAILY;
     Route: 048
     Dates: start: 20161201, end: 20170119
  15. ULTRAVIST [Suspect]
     Active Substance: IOPROMIDE
     Indication: CHEST SCAN
     Route: 042
     Dates: start: 20170116, end: 20170116
  16. PRIMPERAN [Suspect]
     Active Substance: METOCLOPRAMIDE HYDROCHLORIDE
     Indication: PRODUCT USED FOR UNKNOWN INDICATION
     Dosage: 3 DOSAGE FORMS DAILY; SCORED TABLET
     Route: 048
     Dates: start: 20161224, end: 20170119
  17. PIPERACILLINE/TAZOBACTAM MYLAN 4 G/500 MG [Suspect]
     Active Substance: PIPERACILLIN SODIUM\TAZOBACTAM SODIUM
     Indication: SKIN INFECTION
     Dosage: 3 DOSAGE FORMS DAILY;
     Route: 042
     Dates: start: 20161204, end: 20170130
  18. LINEZOLIDE ARROW 600 MG, COMPRIM? PELLICUL? [Suspect]
     Active Substance: LINEZOLID
     Indication: SKIN INFECTION
     Dosage: 600 MG, BID
     Dates: start: 20161222, end: 20170110
  19. DIFFU K [Concomitant]
     Active Substance: POTASSIUM CHLORIDE
     Indication: PRODUCT USED FOR UNKNOWN INDICATION
  20. PANTOPRAZOLE [Suspect]
     Active Substance: PANTOPRAZOLE
     Indication: PRODUCT USED FOR UNKNOWN INDICATION
     Route: 042
     Dates: start: 20161225, end: 20170119
  21. NEFOPAM MEDISOL [Suspect]
     Active Substance: NEFOPAM HYDROCHLORIDE
     Indication: PRODUCT USED FOR UNKNOWN INDICATION
     Route: 042
     Dates: start: 20161202, end: 20170119
  22. LOVENOX [Concomitant]
     Active Substance: ENOXAPARIN SODIUM
  23. POLARAMINE [Concomitant]
     Active Substance: DEXCHLORPHENIRAMINE MALEATE
     Indication: PRODUCT USED FOR UNKNOWN INDICATION
     Route: 065

REACTIONS (20)
  - Rash maculo-papular [Not Recovered/Not Resolved]
  - Alveolar lung disease [Unknown]
  - Generalised oedema [Unknown]
  - Hepatic encephalopathy [Unknown]
  - Eosinophilia [Not Recovered/Not Resolved]
  - Death [Fatal]
  - Restlessness [Unknown]
  - Eosinophilic pneumonia [Unknown]
  - Dyspnoea [Not Recovered/Not Resolved]
  - Pulmonary interstitial emphysema syndrome [Unknown]
  - Acute kidney injury [Unknown]
  - Diffuse alveolar damage [Not Recovered/Not Resolved]
  - Hyperammonaemia [Not Recovered/Not Resolved]
  - Rectal haemorrhage [Unknown]
  - Glomerular filtration rate decreased [Unknown]
  - Sepsis [Unknown]
  - Hyperammonaemia [Not Recovered/Not Resolved]
  - Rash maculo-papular [Not Recovered/Not Resolved]
  - Thrombocytopenia [Unknown]
  - Eczema [Unknown]

NARRATIVE: CASE EVENT DATE: 20161227
